FAERS Safety Report 17650386 (Version 1)
Quarter: 2020Q2

REPORT INFORMATION
  Report Type: Spontaneous
  Country: ES (occurrence: ES)
  Receive Date: 20200409
  Receipt Date: 20200409
  Transmission Date: 20200713
  Serious: Yes (Hospitalization, Other)
  Sender: FDA-Public Use
  Company Number: ES-ELI_LILLY_AND_COMPANY-ES202003013435

PATIENT
  Age: 50 Year
  Sex: Male
  Weight: 76.9 kg

DRUGS (29)
  1. GEMCITABINE HYDROCHLORIDE. [Suspect]
     Active Substance: GEMCITABINE HYDROCHLORIDE
     Dosage: 800 MG/M2, UNKNOWN
     Route: 041
     Dates: start: 20190213, end: 20190213
  2. GEMCITABINE HYDROCHLORIDE. [Suspect]
     Active Substance: GEMCITABINE HYDROCHLORIDE
     Dosage: 800 MG/M2, UNKNOWN
     Route: 041
     Dates: start: 20190227, end: 20190227
  3. MEDI 9447 [Suspect]
     Active Substance: OLECLUMAB
     Indication: PRODUCT USED FOR UNKNOWN INDICATION
     Dosage: 3000 MG, UNKNOWN
     Route: 041
     Dates: start: 20190513, end: 20190513
  4. GEMCITABINE HYDROCHLORIDE. [Suspect]
     Active Substance: GEMCITABINE HYDROCHLORIDE
     Dosage: 800 MG/M2, UNKNOWN
     Route: 041
     Dates: start: 20190410, end: 20190410
  5. ABRAXANE [Suspect]
     Active Substance: PACLITAXEL
     Indication: PRODUCT USED FOR UNKNOWN INDICATION
     Dosage: 100 MG/M2, UNKNOWN
     Route: 041
     Dates: start: 20190319, end: 20190319
  6. ABRAXANE [Suspect]
     Active Substance: PACLITAXEL
     Indication: PRODUCT USED FOR UNKNOWN INDICATION
     Dosage: 100 MG/M2, UNKNOWN
     Route: 041
     Dates: start: 20190410, end: 20190410
  7. OMEPRAZOLE. [Concomitant]
     Active Substance: OMEPRAZOLE
     Indication: PROPHYLAXIS AGAINST GASTROINTESTINAL ULCER
     Dosage: 20 MILLIGRAM
     Route: 048
     Dates: start: 2018
  8. ABRAXANE [Suspect]
     Active Substance: PACLITAXEL
     Indication: PRODUCT USED FOR UNKNOWN INDICATION
     Dosage: 100 MG/M2, UNKNOWN
     Route: 041
     Dates: start: 20190513, end: 20190513
  9. ABRAXANE [Suspect]
     Active Substance: PACLITAXEL
     Indication: PRODUCT USED FOR UNKNOWN INDICATION
     Dosage: 100 MG/M2, UNKNOWN
     Route: 041
     Dates: start: 20190213, end: 20190213
  10. MEDI 9447 [Suspect]
     Active Substance: OLECLUMAB
     Indication: PRODUCT USED FOR UNKNOWN INDICATION
     Dosage: 3000 MG, UNKNOWN
     Route: 041
     Dates: start: 20190319, end: 20190319
  11. GEMCITABINE HYDROCHLORIDE. [Suspect]
     Active Substance: GEMCITABINE HYDROCHLORIDE
     Dosage: 800 MG/M2, UNKNOWN
     Route: 041
     Dates: start: 20190404, end: 20190404
  12. KREON [Concomitant]
     Active Substance: PANCRELIPASE
     Indication: PANCREATIC CARCINOMA METASTATIC
     Dosage: 2500 INTERNATIONAL UNIT, UNKNOWN
     Route: 048
     Dates: start: 2018
  13. GEMCITABINE HYDROCHLORIDE. [Suspect]
     Active Substance: GEMCITABINE HYDROCHLORIDE
     Indication: PRODUCT USED FOR UNKNOWN INDICATION
     Dosage: 800 MG/M2, UNKNOWN
     Route: 041
     Dates: start: 20190123, end: 20190123
  14. GEMCITABINE HYDROCHLORIDE. [Suspect]
     Active Substance: GEMCITABINE HYDROCHLORIDE
     Dosage: 800 MG/M2, UNKNOWN
     Route: 041
     Dates: start: 20190130, end: 20190130
  15. MEDI 9447 [Suspect]
     Active Substance: OLECLUMAB
     Indication: PRODUCT USED FOR UNKNOWN INDICATION
     Dosage: 3000 MG, UNKNOWN
     Route: 041
     Dates: start: 20190213, end: 20190213
  16. NAPROXEN SODIUM. [Concomitant]
     Active Substance: NAPROXEN SODIUM
     Indication: NAUSEA
     Dosage: 10 MG, UNKNOWN
     Route: 002
     Dates: start: 20190124
  17. GEMCITABINE HYDROCHLORIDE. [Suspect]
     Active Substance: GEMCITABINE HYDROCHLORIDE
     Dosage: 800 MG/M2, UNKNOWN
     Route: 041
     Dates: start: 20190319, end: 20190319
  18. ABRAXANE [Suspect]
     Active Substance: PACLITAXEL
     Indication: PRODUCT USED FOR UNKNOWN INDICATION
     Dosage: 100 MG/M2, UNKNOWN
     Route: 041
     Dates: start: 20190227, end: 20190227
  19. MEDI 9447 [Suspect]
     Active Substance: OLECLUMAB
     Indication: PANCREATIC CARCINOMA METASTATIC
     Dosage: 3000 MG, UNKNOWN
     Route: 041
     Dates: start: 20190123, end: 20190123
  20. KREON [Concomitant]
     Active Substance: PANCRELIPASE
     Indication: PROPHYLAXIS
     Dosage: UNK, UNKNOWN
     Route: 065
  21. GEMCITABINE HYDROCHLORIDE. [Suspect]
     Active Substance: GEMCITABINE HYDROCHLORIDE
     Dosage: 800 MG/M2, UNKNOWN
     Route: 041
     Dates: start: 20190416, end: 20190416
  22. ABRAXANE [Suspect]
     Active Substance: PACLITAXEL
     Indication: PRODUCT USED FOR UNKNOWN INDICATION
     Dosage: 100 MG/M2, UNKNOWN
     Route: 041
     Dates: start: 20190416, end: 20190416
  23. ABRAXANE [Suspect]
     Active Substance: PACLITAXEL
     Indication: PRODUCT USED FOR UNKNOWN INDICATION
     Dosage: 100 MG/M2, UNKNOWN
     Route: 041
     Dates: start: 20190404, end: 20190404
  24. MEDI 9447 [Suspect]
     Active Substance: OLECLUMAB
     Indication: PRODUCT USED FOR UNKNOWN INDICATION
     Dosage: 3000 MG, UNKNOWN
     Route: 041
     Dates: start: 20190404, end: 20190404
  25. ABRAXANE [Suspect]
     Active Substance: PACLITAXEL
     Indication: PRODUCT USED FOR UNKNOWN INDICATION
     Dosage: 100 MG/M2, UNKNOWN
     Route: 041
     Dates: start: 20190520, end: 20190520
  26. ABRAXANE [Suspect]
     Active Substance: PACLITAXEL
     Indication: PANCREATIC CARCINOMA METASTATIC
     Dosage: 125 MG/M2, UNKNOWN
     Route: 041
     Dates: start: 20190123, end: 20190123
  27. MEDI 9447 [Suspect]
     Active Substance: OLECLUMAB
     Indication: PRODUCT USED FOR UNKNOWN INDICATION
     Dosage: 3000 MG, UNKNOWN
     Route: 041
     Dates: start: 20190227, end: 20190227
  28. ABRAXANE [Suspect]
     Active Substance: PACLITAXEL
     Indication: PRODUCT USED FOR UNKNOWN INDICATION
     Dosage: 125 MG/M2, UNKNOWN
     Route: 041
     Dates: start: 20190130, end: 20190130
  29. URBASON [METHYLPREDNISOLONE] [Concomitant]
     Active Substance: METHYLPREDNISOLONE
     Indication: ASTHENIA
     Dosage: 23 MILLIGRAM
     Route: 002
     Dates: start: 20190416

REACTIONS (1)
  - Bile duct obstruction [Recovered/Resolved]

NARRATIVE: CASE EVENT DATE: 20190423
